FAERS Safety Report 11043071 (Version 1)
Quarter: 2015Q2

REPORT INFORMATION
  Report Type: Spontaneous
  Country: US (occurrence: None)
  Receive Date: 20150416
  Receipt Date: 20150416
  Transmission Date: 20150821
  Serious: No
  Sender: FDA-Public Use
  Company Number: None

PATIENT
  Age: 53 Year
  Sex: Female
  Weight: 136.08 kg

DRUGS (3)
  1. KEPPRA [Concomitant]
     Active Substance: LEVETIRACETAM
  2. CELECOXIB 200 MG TEVA USA [Suspect]
     Active Substance: CELECOXIB
     Indication: INFLAMMATION
     Dosage: 1 ONCE DAILY TAKEN BY MOUTH
     Route: 048
     Dates: end: 20150401
  3. SYNTHROID [Concomitant]
     Active Substance: LEVOTHYROXINE SODIUM

REACTIONS (2)
  - Pruritus [None]
  - Product substitution issue [None]
